FAERS Safety Report 16228964 (Version 1)
Quarter: 2019Q2

REPORT INFORMATION
  Report Type: Spontaneous
  Country: US (occurrence: US)
  Receive Date: 20190423
  Receipt Date: 20190423
  Transmission Date: 20190711
  Serious: No
  Sender: FDA-Public Use
  Company Number: US-BAUSCH-BL-2018-011746

PATIENT
  Age: 67 Year
  Sex: Female

DRUGS (1)
  1. ARESTIN [Suspect]
     Active Substance: MINOCYCLINE HYDROCHLORIDE
     Indication: DENTAL CLEANING
     Route: 065
     Dates: start: 20180321, end: 20180321

REACTIONS (6)
  - Feeling abnormal [Unknown]
  - Chest discomfort [Unknown]
  - Oesophageal disorder [Unknown]
  - Rash erythematous [Unknown]
  - Feeling hot [Unknown]
  - Muscle tightness [Unknown]

NARRATIVE: CASE EVENT DATE: 20180322
